FAERS Safety Report 4398810-2 (Version None)
Quarter: 2004Q3

REPORT INFORMATION
  Report Type: 
  Country: None (occurrence: None)
  Receive Date: 20040712
  Receipt Date: 20040625
  Transmission Date: 20050211
  Serious: Yes (Death, Life-Threatening, Hospitalization)
  Sender: FDA-Public Use
  Company Number: 2004-BP-05040BP

PATIENT
  Age: 53 Year
  Sex: Male
  Weight: 123.6 kg

DRUGS (13)
  1. MICARDIS           (BLIND) (TELMISARTAN) [Suspect]
     Indication: DIABETIC NEPHROPATHY
     Dosage: PO
     Route: 048
     Dates: start: 20030926, end: 20040620
  2. COZAAR [Suspect]
     Indication: DIABETIC NEPHROPATHY
     Dosage: PO
     Route: 048
     Dates: start: 20030926, end: 20040620
  3. HUMULIN INSULIN [Suspect]
     Indication: DIABETES MELLITUS
     Dosage: 155 U, SC
     Route: 058
     Dates: start: 20030201
  4. HUMALOG [Suspect]
     Indication: DIABETES MELLITUS
     Dosage: DAILY DOSE VARIES 30
     Dates: start: 20030201
  5. FUROSEMIDE [Suspect]
     Indication: HYPERTENSION
     Dosage: 80 MG (40 MG), PO
     Route: 048
     Dates: start: 20000101, end: 20040620
  6. ZAROXOLYN [Suspect]
     Indication: FLUID RETENTION
     Dosage: 7.5 MG (2.5 MG) PO
     Route: 048
     Dates: start: 20000101, end: 20040623
  7. ZOLOFT [Suspect]
     Indication: DEPRESSION
     Dosage: 100 MG (100 MG) PO
     Route: 048
     Dates: start: 20020101
  8. PLAVIX [Suspect]
     Indication: THROMBOSIS PROPHYLAXIS
     Dosage: 75 MG (75 MG) PO
     Route: 048
     Dates: start: 20010101
  9. TOPROL-XL [Concomitant]
  10. ISOSORBIDE [Concomitant]
  11. NA BICARB [Concomitant]
  12. NEURONTIN [Concomitant]
  13. STADOL [Concomitant]

REACTIONS (5)
  - CARDIAC ARREST [None]
  - CARDIAC FAILURE CONGESTIVE [None]
  - HAEMODIALYSIS [None]
  - PNEUMONIA [None]
  - RENAL FAILURE CHRONIC [None]
